FAERS Safety Report 8165041-X (Version None)
Quarter: 2012Q1

REPORT INFORMATION
  Report Type: 
  Country: None (occurrence: None)
  Receive Date: 20120227
  Receipt Date: 20120216
  Transmission Date: 20120608
  Serious: No
  Sender: FDA-Public Use
  Company Number: US-BIOGENIDEC-2012BI006307

PATIENT
  Sex: Female

DRUGS (3)
  1. AVONEX [Suspect]
     Indication: MULTIPLE SCLEROSIS
     Route: 030
     Dates: start: 20060907
  2. AVONEX [Suspect]
     Route: 030
  3. STEROIDS (NOS) [Concomitant]
     Route: 042

REACTIONS (4)
  - DROOLING [None]
  - BALANCE DISORDER [None]
  - SPEECH DISORDER [None]
  - DEMENTIA ALZHEIMER'S TYPE [None]
